FAERS Safety Report 18310939 (Version 1)
Quarter: 2020Q3

REPORT INFORMATION
  Report Type: Spontaneous
  Country: NL (occurrence: NL)
  Receive Date: 20200924
  Receipt Date: 20200924
  Transmission Date: 20201103
  Serious: Yes (Other)
  Sender: FDA-Public Use
  Company Number: NL-009507513-2009NLD007350

PATIENT
  Age: 62 Year
  Sex: Male
  Weight: 98 kg

DRUGS (19)
  1. PANTOPRAZOLE [Concomitant]
     Active Substance: PANTOPRAZOLE
     Dosage: 1 TIME A DAY 40 MG
  2. NOREPINEPHRINE. [Concomitant]
     Active Substance: NOREPINEPHRINE
     Dosage: 1 DOSAGE FORM (STRENGTH: 0,2 MG/ML)
  3. IPRATROPIUM BROMIDE. [Concomitant]
     Active Substance: IPRATROPIUM BROMIDE
     Dosage: 4 TIMES A DAY DOSIS
  4. PAROXETINE HYDROCHLORIDE. [Concomitant]
     Active Substance: PAROXETINE HYDROCHLORIDE
     Dosage: 1 TIME A DAY 3 PIECES
  5. ZOPICLONE [Concomitant]
     Active Substance: ZOPICLONE
     Dosage: 1 TIME A DAY 1 PIECE, IF NEEDED ONE MORE
  6. ATENOLOL. [Concomitant]
     Active Substance: ATENOLOL
     Dosage: 1 TIME A DAY 1 PIECE
  7. CARBOMER 980 [Concomitant]
     Active Substance: CARBOMER HOMOPOLYMER TYPE C (ALLYL PENTAERYTHRITOL CROSSLINKED)
     Dosage: 4 TIMES A DAY 2 DROPS (STRENGHT: 2MG/G)
  8. INSULIN ASPART [Concomitant]
     Active Substance: INSULIN ASPART
     Dosage: VV: START POMP OP SEH 4 EENHEDEN
  9. SUFENTANIL [Concomitant]
     Active Substance: SUFENTANIL
     Dosage: STRENGTH: 50UG/ML
  10. METOCLOPRAMIDE HYDROCHLORIDE. [Concomitant]
     Active Substance: METOCLOPRAMIDE HYDROCHLORIDE
     Dosage: 3 TIMES A DAY  5 MG
  11. NIFEDIPINE. [Concomitant]
     Active Substance: NIFEDIPINE
     Dosage: 1 TIME A DAY 1 PIECE
  12. SIMVASTATIN. [Suspect]
     Active Substance: SIMVASTATIN
     Indication: HYPERCHOLESTEROLAEMIA
     Dosage: 1DD1
     Dates: start: 2010, end: 20200831
  13. ORABASE [Concomitant]
     Active Substance: CARBOXYMETHYLCELLULOSE SODIUM\GELATIN\PECTIN
     Dosage: 4 TIMES A DAY 0,5 GRAM
  14. ASPIRIN. [Concomitant]
     Active Substance: ASPIRIN
     Dosage: 1 TIME A DAY 1 PIECE
  15. MAGNESIUM (UNSPECIFIED) [Concomitant]
     Active Substance: MAGNESIUM
     Dosage: ARE 2 PIECES 3 TIMES A DAY
  16. VORICONAZOLE. [Interacting]
     Active Substance: VORICONAZOLE
     Indication: BRONCHOPULMONARY ASPERGILLOSIS
     Dosage: 2DD320MG
     Dates: start: 20200828
  17. OXAZEPAM. [Concomitant]
     Active Substance: OXAZEPAM
     Dosage: 3 TIMES PER DAY 5 MG
  18. ALBUTEROL. [Concomitant]
     Active Substance: ALBUTEROL
     Dosage: 4 TIMES A DAY 1 DOSIS
  19. TEMAZEPAM. [Concomitant]
     Active Substance: TEMAZEPAM
     Dosage: 1 TIME A DAY 1 PIECE

REACTIONS (3)
  - Rhabdomyolysis [Recovering/Resolving]
  - Acute kidney injury [Recovering/Resolving]
  - Drug interaction [Unknown]

NARRATIVE: CASE EVENT DATE: 20200831
